FAERS Safety Report 10286197 (Version 1)
Quarter: 2014Q3

REPORT INFORMATION
  Report Type: Spontaneous
  Country: US (occurrence: None)
  Receive Date: 20140707
  Receipt Date: 20140707
  Transmission Date: 20150326
  Serious: Yes (Hospitalization)
  Sender: FDA-Public Use
  Company Number: None

PATIENT
  Age: 34 Year
  Sex: Female
  Weight: 58.97 kg

DRUGS (1)
  1. LINZESS [Suspect]
     Active Substance: LINACLOTIDE
     Indication: CONSTIPATION
     Dosage: 1 PILL QD ORAL
     Route: 048
     Dates: start: 20140606, end: 20140703

REACTIONS (2)
  - Peripheral swelling [None]
  - Muscle spasms [None]

NARRATIVE: CASE EVENT DATE: 20140702
